FAERS Safety Report 16734658 (Version 2)
Quarter: 2019Q3

REPORT INFORMATION
  Report Type: Report from Study
  Country: DE (occurrence: DE)
  Receive Date: 20190823
  Receipt Date: 20190829
  Transmission Date: 20191005
  Serious: Yes (Death, Hospitalization, Other)
  Sender: FDA-Public Use
  Company Number: PHHY2019DE024518

PATIENT
  Sex: Female
  Weight: 81 kg

DRUGS (3)
  1. KISQALI [Suspect]
     Active Substance: RIBOCICLIB
     Indication: BREAST CANCER
     Dosage: 600 MG, QD
     Route: 048
     Dates: start: 20180905, end: 20181206
  2. KISQALI [Suspect]
     Active Substance: RIBOCICLIB
     Dosage: 600 MG, QD
     Route: 065
     Dates: start: 20190102, end: 20190716
  3. LETROZOLE. [Suspect]
     Active Substance: LETROZOLE
     Indication: BREAST CANCER
     Dosage: 2.5 MG, QD
     Route: 048
     Dates: start: 20180905, end: 20190714

REACTIONS (10)
  - Breast cancer [Fatal]
  - Blood creatinine increased [Recovering/Resolving]
  - Leukopenia [Recovered/Resolved]
  - General physical health deterioration [Unknown]
  - Malignant neoplasm progression [Fatal]
  - Vomiting [Unknown]
  - Confusional state [Unknown]
  - Headache [Unknown]
  - Hydronephrosis [Recovering/Resolving]
  - Dizziness [Unknown]

NARRATIVE: CASE EVENT DATE: 20181205
